FAERS Safety Report 16790986 (Version 1)
Quarter: 2019Q4

REPORT INFORMATION
  Report Type: Spontaneous
  Country: US (occurrence: US)
  Receive Date: 20190909
  Receipt Date: 20190909
  Transmission Date: 20200122
  Serious: Yes (Life-Threatening)
  Sender: FDA-Public Use
  Company Number: None

PATIENT
  Age: 65 Day
  Sex: Female
  Weight: 135 kg

DRUGS (1)
  1. CITRUCEL [Suspect]
     Active Substance: METHYLCELLULOSE (4000 MPA.S)
     Indication: CONSTIPATION
     Dosage: ?          OTHER STRENGTH:TABLESPOON;QUANTITY:1 TABLESPOON(S);?
     Route: 048
     Dates: start: 20190905, end: 20190907

REACTIONS (2)
  - Product use complaint [None]
  - Blood glucose increased [None]

NARRATIVE: CASE EVENT DATE: 20190905
